FAERS Safety Report 11587031 (Version 1)
Quarter: 2015Q4

REPORT INFORMATION
  Report Type: Spontaneous
  Country: US (occurrence: US)
  Receive Date: 20151001
  Receipt Date: 20151001
  Transmission Date: 20160304
  Serious: Yes (Other)
  Sender: FDA-Public Use
  Company Number: US-TEVA-597699USA

PATIENT
  Age: 31 Year
  Sex: Female

DRUGS (1)
  1. AMOXICILLIN. [Suspect]
     Active Substance: AMOXICILLIN
     Indication: SINUSITIS
     Route: 065

REACTIONS (13)
  - Stress [Unknown]
  - Tooth infection [Unknown]
  - Depression [Unknown]
  - Nausea [Unknown]
  - Pain in jaw [Unknown]
  - Deja vu [Unknown]
  - Dizziness [Unknown]
  - Maternal exposure before pregnancy [Unknown]
  - Menorrhagia [Unknown]
  - Seizure [Recovered/Resolved]
  - Headache [Unknown]
  - Generalised tonic-clonic seizure [Recovered/Resolved]
  - Migraine [Unknown]
